FAERS Safety Report 12441450 (Version 1)
Quarter: 2016Q2

REPORT INFORMATION
  Report Type: Spontaneous
  Country: US (occurrence: US)
  Receive Date: 20160607
  Receipt Date: 20160607
  Transmission Date: 20160815
  Serious: No
  Sender: FDA-Public Use
  Company Number: US-PFIZER INC-2016278062

PATIENT
  Sex: Female

DRUGS (3)
  1. ADVIL [Suspect]
     Active Substance: IBUPROFEN
     Indication: SINUS DISORDER
  2. ADVIL [Suspect]
     Active Substance: IBUPROFEN
     Indication: HYPERSENSITIVITY
  3. ADVIL [Suspect]
     Active Substance: IBUPROFEN
     Indication: NASOPHARYNGITIS
     Dosage: 200 MG, 4X/DAY TOOK FOUR OF THEM YESTERDAY
     Dates: start: 20160525

REACTIONS (3)
  - Fatigue [Unknown]
  - Poor quality sleep [Unknown]
  - Headache [Unknown]

NARRATIVE: CASE EVENT DATE: 201605
